FAERS Safety Report 6802255-2 (Version None)
Quarter: 2010Q2

REPORT INFORMATION
  Report Type: 
  Country: None (occurrence: None)
  Receive Date: 20100628
  Receipt Date: 20100621
  Transmission Date: 20101027
  Serious: Yes (Other)
  Sender: FDA-Public Use
  Company Number: US-BIOGENIDEC-2010BI020970

PATIENT
  Age: 46 Year
  Sex: Female

DRUGS (1)
  1. TYSABRI [Suspect]
     Indication: MULTIPLE SCLEROSIS
     Route: 042
     Dates: start: 20080807

REACTIONS (5)
  - CONVULSION [None]
  - DYSKINESIA [None]
  - FATIGUE [None]
  - HYPERHIDROSIS [None]
  - PAIN IN EXTREMITY [None]
